APPROVED DRUG PRODUCT: ADRIAMYCIN PFS
Active Ingredient: DOXORUBICIN HYDROCHLORIDE
Strength: 2MG/ML
Dosage Form/Route: INJECTABLE;INJECTION
Application: A063165 | Product #001
Applicant: PFIZER INC
Approved: Jan 30, 1991 | RLD: No | RS: No | Type: DISCN